FAERS Safety Report 13876371 (Version 1)
Quarter: 2017Q3

REPORT INFORMATION
  Report Type: Spontaneous
  Country: US (occurrence: US)
  Receive Date: 20170816
  Receipt Date: 20170816
  Transmission Date: 20171127
  Serious: Yes (Other)
  Sender: FDA-Public Use
  Company Number: None

PATIENT
  Age: 68 Year
  Sex: Male
  Weight: 65 kg

DRUGS (1)
  1. ADENOSINE. [Suspect]
     Active Substance: ADENOSINE
     Indication: TACHYCARDIA
     Route: 040
     Dates: start: 20170816, end: 20170816

REACTIONS (2)
  - Drug ineffective [None]
  - Extra dose administered [None]

NARRATIVE: CASE EVENT DATE: 20170816
